FAERS Safety Report 8284649-4 (Version None)
Quarter: 2012Q2

REPORT INFORMATION
  Report Type: 
  Country: None (occurrence: None)
  Receive Date: 20120413
  Receipt Date: 20110803
  Transmission Date: 20120825
  Serious: No
  Sender: FDA-Public Use
  Company Number: US-ASTRAZENECA-2011SE46476

PATIENT
  Age: 50 Year
  Sex: Female
  Weight: 72.6 kg

DRUGS (6)
  1. SEROQUEL [Suspect]
     Indication: BIPOLAR DISORDER
     Route: 048
  2. SUCRALFATE [Concomitant]
  3. NEXIUM [Suspect]
     Indication: GASTROOESOPHAGEAL REFLUX DISEASE
     Route: 048
  4. SYMBICORT [Concomitant]
  5. SPIRIVA [Concomitant]
  6. LAMICTAL [Concomitant]

REACTIONS (5)
  - DRUG DOSE OMISSION [None]
  - SOCIAL AVOIDANT BEHAVIOUR [None]
  - CRYING [None]
  - DRUG EFFECT DECREASED [None]
  - INSOMNIA [None]
